FAERS Safety Report 10173773 (Version 1)
Quarter: 2014Q2

REPORT INFORMATION
  Report Type: Report from Study
  Country: CN (occurrence: CN)
  Receive Date: 20140515
  Receipt Date: 20140515
  Transmission Date: 20141212
  Serious: Yes (Other)
  Sender: FDA-Public Use
  Company Number: CN-ELI_LILLY_AND_COMPANY-CN201405001733

PATIENT
  Sex: Male
  Weight: 28 kg

DRUGS (1)
  1. ATOMOXETINE HYDROCHLORIDE [Suspect]
     Indication: ATTENTION DEFICIT/HYPERACTIVITY DISORDER
     Dosage: 25 MG, QD
     Route: 065
     Dates: start: 20130326, end: 20130601

REACTIONS (4)
  - Drug-induced liver injury [Unknown]
  - Liver disorder [Unknown]
  - Decreased appetite [Unknown]
  - Aggression [Unknown]
